FAERS Safety Report 24290385 (Version 1)
Quarter: 2024Q3

REPORT INFORMATION
  Report Type: Spontaneous
  Country: US (occurrence: US)
  Receive Date: 20240906
  Receipt Date: 20240906
  Transmission Date: 20241017
  Serious: No
  Sender: BIOGEN
  Company Number: US-BIOGEN-2020BI00878240

PATIENT
  Sex: Female

DRUGS (5)
  1. PLEGRIDY [Suspect]
     Active Substance: PEGINTERFERON BETA-1A
     Indication: Multiple sclerosis
     Route: 050
  2. XANAX [Concomitant]
     Active Substance: ALPRAZOLAM
     Route: 050
  3. NOVOLOG [Concomitant]
     Active Substance: INSULIN ASPART
     Dosage: 100 UNIT/ML CART (5/PK)
     Route: 050
  4. BENTYL [Concomitant]
     Active Substance: DICYCLOMINE HYDROCHLORIDE
     Route: 050
  5. PREDNISONE [Concomitant]
     Active Substance: PREDNISONE
     Route: 050

REACTIONS (2)
  - Injection site erythema [Unknown]
  - Influenza like illness [Unknown]
